FAERS Safety Report 5971718-4 (Version None)
Quarter: 2008Q4

REPORT INFORMATION
  Report Type: 
  Country: None (occurrence: None)
  Receive Date: 20081126
  Receipt Date: 20081126
  Transmission Date: 20090506
  Serious: Yes (Hospitalization)
  Sender: FDA-Public Use
  Company Number: None

PATIENT
  Sex: Female
  Weight: 46.82 kg

DRUGS (2)
  1. CISPLATIN [Suspect]
     Dosage: 45 MG
  2. ERBITUX [Suspect]
     Dosage: 373 MG

REACTIONS (2)
  - BACTERAEMIA [None]
  - URINARY TRACT INFECTION [None]
